FAERS Safety Report 10697361 (Version 1)
Quarter: 2015Q1

REPORT INFORMATION
  Report Type: Spontaneous
  Country: US (occurrence: US)
  Receive Date: 20150108
  Receipt Date: 20150108
  Transmission Date: 20150721
  Serious: Yes (Other)
  Sender: FDA-Public Use
  Company Number: US-GLAXOSMITHKLINE INC.-US2014039496

PATIENT
  Sex: Female

DRUGS (3)
  1. KEPPRA [Concomitant]
     Active Substance: LEVETIRACETAM
  2. LAMICTAL [Suspect]
     Active Substance: LAMOTRIGINE
     Indication: SEIZURE
     Dosage: 300 MG, BID
     Route: 048
  3. DILANTIN [Concomitant]
     Active Substance: PHENYTOIN

REACTIONS (4)
  - Seizure [Recovered/Resolved]
  - Deafness unilateral [Not Recovered/Not Resolved]
  - Skull fracture [Unknown]
  - Malaise [Unknown]
